FAERS Safety Report 8232880-6 (Version None)
Quarter: 2012Q1

REPORT INFORMATION
  Report Type: 
  Country: None (occurrence: None)
  Receive Date: 20120324
  Receipt Date: 20120314
  Transmission Date: 20120608
  Serious: Yes (Life-Threatening)
  Sender: FDA-Public Use
  Company Number: PL-AMGEN-POLSP2012017405

PATIENT
  Age: 71 Year
  Sex: Female
  Weight: 90 kg

DRUGS (1)
  1. ENBREL [Suspect]
     Indication: RHEUMATOID ARTHRITIS
     Dosage: 50 MG, WEEKLY
     Route: 058
     Dates: start: 20111215, end: 20120216

REACTIONS (5)
  - HEADACHE [None]
  - COUGH [None]
  - CHEST PAIN [None]
  - NIGHT SWEATS [None]
  - RHINITIS [None]
